FAERS Safety Report 6237913-4 (Version None)
Quarter: 2009Q2

REPORT INFORMATION
  Report Type: 
  Country: None (occurrence: None)
  Receive Date: 20090621
  Receipt Date: 20090610
  Transmission Date: 20091009
  Serious: Yes (Hospitalization)
  Sender: FDA-Public Use
  Company Number: PHHY2009MX23000

PATIENT
  Sex: Male

DRUGS (2)
  1. TEGRETOL [Suspect]
     Indication: EPILEPSY
     Dosage: 200 MG, BID
     Route: 048
     Dates: start: 20070727
  2. TEGRETOL [Suspect]
     Dosage: UNK
     Route: 048

REACTIONS (1)
  - PSYCHOTIC DISORDER [None]
